FAERS Safety Report 19871391 (Version 1)
Quarter: 2021Q3

REPORT INFORMATION
  Report Type: Spontaneous
  Country: US (occurrence: US)
  Receive Date: 20210922
  Receipt Date: 20210922
  Transmission Date: 20211014
  Serious: Yes (Hospitalization)
  Sender: FDA-Public Use
  Company Number: None

PATIENT
  Sex: Male

DRUGS (22)
  1. ACYCLOVIR. [Concomitant]
     Active Substance: ACYCLOVIR
  2. GLUCAGON. [Concomitant]
     Active Substance: GLUCAGON
  3. LACTOBACILLUS [Concomitant]
     Active Substance: LACTOBACILLUS ACIDOPHILUS
  4. AMLODIPINE [Concomitant]
     Active Substance: AMLODIPINE BESYLATE
  5. FINASTERIDE. [Concomitant]
     Active Substance: FINASTERIDE
  6. TRETINOIN 10 MG CAP [Suspect]
     Active Substance: TRETINOIN
     Indication: MYELOID LEUKAEMIA
     Route: 048
  7. LIDOCAINE. [Concomitant]
     Active Substance: LIDOCAINE
  8. ATORVASTATIN [Concomitant]
     Active Substance: ATORVASTATIN
  9. DOCUSATE [Concomitant]
     Active Substance: DOCUSATE
  10. HYDRALAZINE [Concomitant]
     Active Substance: HYDRALAZINE HYDROCHLORIDE
  11. METOPROLOL. [Concomitant]
     Active Substance: METOPROLOL
  12. MORPHINE [Concomitant]
     Active Substance: MORPHINE
  13. BIOTENE NOS [Concomitant]
     Active Substance: CETYLPYRIDINIUM CHLORIDE OR SODIUM FLUORIDE OR SODIUM MONOFLUOROPHOSPHATE OR GLUCOSE OXIDASE\LACTOFERRIN\LACTOPEROXIDASE BOVINE\LYSOZYME
  14. CEFPODOXIME [Concomitant]
     Active Substance: CEFPODOXIME
  15. HUMALOG [Concomitant]
     Active Substance: INSULIN LISPRO
  16. ACETAMINOPHEN. [Concomitant]
     Active Substance: ACETAMINOPHEN
  17. ARESENIC TRIOXIDE INJ [Concomitant]
  18. DICYCLOMINE [Concomitant]
     Active Substance: DICYCLOMINE HYDROCHLORIDE
  19. ELIQUIS [Concomitant]
     Active Substance: APIXABAN
  20. FUROSEMIDE. [Concomitant]
     Active Substance: FUROSEMIDE
  21. LANTUS [Concomitant]
     Active Substance: INSULIN GLARGINE
  22. MIRALAX [Concomitant]
     Active Substance: POLYETHYLENE GLYCOL 3350

REACTIONS (1)
  - Hospitalisation [None]
